FAERS Safety Report 4978759-4 (Version None)
Quarter: 2006Q2

REPORT INFORMATION
  Report Type: 
  Country: None (occurrence: None)
  Receive Date: 20060417
  Receipt Date: 20060331
  Transmission Date: 20061013
  Serious: Yes (Hospitalization)
  Sender: FDA-Public Use
  Company Number: GXKR2006CN01842

PATIENT
  Age: 37 Year
  Sex: Male

DRUGS (3)
  1. ASPIRIN [Suspect]
     Indication: HEADACHE
     Dosage: 0.5 G, Q8H,
  2. DEXAMETHASONE [Suspect]
     Indication: MOUNTAIN SICKNESS ACUTE
     Dosage: SEE IMAGE
  3. ETHANOL (ETHANOL) [Suspect]
     Dosage: 300 ML, ONCE/SINGLE, ORAL
     Route: 048

REACTIONS (13)
  - ABDOMINAL PAIN [None]
  - DRUG INTERACTION [None]
  - DUODENAL ULCER [None]
  - FATIGUE [None]
  - GASTRIC ULCER [None]
  - GASTRITIS EROSIVE [None]
  - GASTROINTESTINAL HAEMORRHAGE [None]
  - GENERAL PHYSICAL HEALTH DETERIORATION [None]
  - HAEMOGLOBIN DECREASED [None]
  - HEADACHE [None]
  - MELAENA [None]
  - NAUSEA [None]
  - SINUS TACHYCARDIA [None]
